FAERS Safety Report 4579791-5 (Version None)
Quarter: 2005Q1

REPORT INFORMATION
  Report Type: 
  Country: None (occurrence: None)
  Receive Date: 20050210
  Receipt Date: 20050202
  Transmission Date: 20050727
  Serious: Yes (Life-Threatening, Disabling, Other)
  Sender: FDA-Public Use
  Company Number: 212194

PATIENT
  Age: 70 Year
  Sex: Male

DRUGS (4)
  1. METALYSE (TENECTEPLASE) PWDR + SOLVENT, INJECTION, SOLN, 50 MG [Suspect]
     Indication: MYOCARDIAL INFARCTION
     Dosage: 9000 UNIT, INTRAVENOUS
     Route: 042
     Dates: start: 20041223
  2. HEPARIN (HEPARIN SODIUIM) [Concomitant]
  3. CLOPIDOGREL (CLOPIDOGREL BISULFATE) [Concomitant]
  4. ASPIRIN [Concomitant]

REACTIONS (8)
  - FALL [None]
  - GASTROINTESTINAL HAEMORRHAGE [None]
  - HAEMATOMA [None]
  - HEAD INJURY [None]
  - HYPOXIC ENCEPHALOPATHY [None]
  - LOSS OF CONSCIOUSNESS [None]
  - PERIORBITAL HAEMATOMA [None]
  - WOUND HAEMORRHAGE [None]
